FAERS Safety Report 5900509-5 (Version None)
Quarter: 2008Q3

REPORT INFORMATION
  Report Type: 
  Country: None (occurrence: None)
  Receive Date: 20080926
  Receipt Date: 20080916
  Transmission Date: 20090109
  Serious: Yes (Life-Threatening, Other)
  Sender: FDA-Public Use
  Company Number: US-PFIZER INC-2008066060

PATIENT
  Age: 46 Year
  Sex: Female

DRUGS (8)
  1. FLUCONAZOLE [Suspect]
     Indication: PNEUMONIA FUNGAL
     Dosage: DAILY DOSE:200MG
     Route: 042
     Dates: start: 20070101
  2. CITALOPRAM HYDROBROMIDE [Interacting]
     Indication: DEPRESSION
     Dosage: DAILY DOSE:20MG
     Route: 048
     Dates: start: 20070101
  3. DAPSONE [Concomitant]
     Dosage: DAILY DOSE:100MG
  4. ACYCLOVIR [Concomitant]
  5. ESOMEPRAZOLE [Concomitant]
     Dosage: DAILY DOSE:20MG
  6. DEXAMETHASONE [Concomitant]
     Dosage: DAILY DOSE:2.5MG
  7. ZOLPIDEM [Concomitant]
  8. LOSARTAN POTASSIUM AND HYDROCHLOROTHIAZIDE [Concomitant]
     Dosage: DAILY DOSE:12.5MG

REACTIONS (3)
  - DELIRIUM [None]
  - DRUG INTERACTION [None]
  - SEROTONIN SYNDROME [None]
